FAERS Safety Report 25823995 (Version 1)
Quarter: 2025Q3

REPORT INFORMATION
  Report Type: Spontaneous
  Country: ID (occurrence: ID)
  Receive Date: 20250919
  Receipt Date: 20250919
  Transmission Date: 20251020
  Serious: Yes (Other)
  Sender: MYLAN
  Company Number: ID-MYLANLABS-2025M1079958

PATIENT
  Age: 47 Year
  Sex: Male

DRUGS (3)
  1. FONDAPARINUX [Suspect]
     Active Substance: FONDAPARINUX
     Indication: Angina pectoris
     Dosage: 2.5 MILLIGRAM, QD (2.5 MILLIGRAM, 1 DOSE DAILY)
  2. ASPIRIN [Concomitant]
     Active Substance: ASPIRIN
  3. CLOPIDOGREL [Concomitant]
     Active Substance: CLOPIDOGREL BISULFATE

REACTIONS (1)
  - Drug ineffective [Unknown]
